FAERS Safety Report 10905133 (Version 4)
Quarter: 2015Q2

REPORT INFORMATION
  Report Type: Other
  Country: US (occurrence: US)
  Receive Date: 20150311
  Receipt Date: 20150506
  Transmission Date: 20150821
  Serious: Yes (Other)
  Sender: FDA-Public Use
  Company Number: US-UNITED THERAPEUTICS-UNT-2014-012354

PATIENT
  Age: 51 Year
  Sex: Male
  Weight: 151.97 kg

DRUGS (6)
  1. TYVASO [Suspect]
     Active Substance: TREPROSTINIL
     Dosage: 18-54 ?G, QID
     Dates: start: 20120619
  2. TYVASO [Suspect]
     Active Substance: TREPROSTINIL
     Dosage: 24 ?G/KG, TID
  3. ASPIRIN                            /00002701/ [Concomitant]
     Active Substance: ASPIRIN
     Indication: PRODUCT USED FOR UNKNOWN INDICATION
  4. TYVASO [Suspect]
     Active Substance: TREPROSTINIL
     Indication: PULMONARY HYPERTENSION
     Dosage: 18-54 ?G, QID
     Dates: start: 20110630
  5. LETAIRIS [Concomitant]
     Active Substance: AMBRISENTAN
     Indication: PRODUCT USED FOR UNKNOWN INDICATION
  6. TYVASO [Suspect]
     Active Substance: TREPROSTINIL
     Dosage: 18-54 ?G, QID

REACTIONS (8)
  - Pneumonia [Unknown]
  - Malaise [Unknown]
  - Therapy cessation [Unknown]
  - Infection [Unknown]
  - Secretion discharge [Unknown]
  - Haemoptysis [Unknown]
  - Pulmonary haemorrhage [Unknown]
  - Cough [Unknown]

NARRATIVE: CASE EVENT DATE: 201412
